FAERS Safety Report 8984189 (Version 2)
Quarter: 2013Q1

REPORT INFORMATION
  Report Type: Spontaneous
  Country: CA (occurrence: CA)
  Receive Date: 20121226
  Receipt Date: 20130114
  Transmission Date: 20140127
  Serious: Yes (Other)
  Sender: FDA-Public Use
  Company Number: CA-AMGEN-CANSP2012082618

PATIENT
  Age: 55 Year
  Sex: Female
  Weight: 86.17 kg

DRUGS (9)
  1. ENBREL [Suspect]
     Indication: RHEUMATOID ARTHRITIS
     Dosage: 50 MG, QWK
     Route: 058
     Dates: start: 201210, end: 201211
  2. ENBREL [Suspect]
  3. METHOTREXATE [Concomitant]
     Indication: RHEUMATOID ARTHRITIS
     Dosage: 2.5 MG, QWK
     Route: 058
     Dates: start: 20101003
  4. MEDROL                             /00049601/ [Concomitant]
     Indication: RHEUMATOID ARTHRITIS
     Dosage: 4 MG, QD
     Route: 048
     Dates: start: 201005
  5. VALSARTAN [Concomitant]
     Dosage: UNK
  6. VITAMIN D /00107901/ [Concomitant]
     Indication: BONE DISORDER
     Dosage: UNK UNK, QD
     Route: 048
     Dates: start: 20101003
  7. CALCIUM [Concomitant]
     Indication: BONE DISORDER
     Dosage: UNK UNK, QD
     Route: 048
     Dates: start: 20101003
  8. VENTOLIN                           /00139501/ [Concomitant]
     Indication: ASTHMA
     Dosage: UNK
  9. TRIDURAL [Concomitant]
     Indication: PAIN
     Dosage: 100 MG, PRN
     Route: 048
     Dates: start: 20121209

REACTIONS (5)
  - Cardiac disorder [Not Recovered/Not Resolved]
  - Palpitations [Recovering/Resolving]
  - Fluid retention [Not Recovered/Not Resolved]
  - Chest pain [Recovering/Resolving]
  - Oedema [Recovering/Resolving]
